FAERS Safety Report 8830210 (Version 1)
Quarter: 2012Q4

REPORT INFORMATION
  Report Type: 
  Country: US (occurrence: US)
  Receive Date: 20121008
  Receipt Date: 20121008
  Transmission Date: 20130627
  Serious: Yes (Hospitalization)
  Sender: FDA-Public Use
  Company Number: US-SANOFI-AVENTIS-2012SA070914

PATIENT
  Age: 88 Year
  Sex: Female
  Weight: 47 kg

DRUGS (13)
  1. LASIX [Suspect]
     Route: 065
  2. INVESTIGATIONAL DRUG [Suspect]
     Indication: SMALL CELL LYMPHOCYTIC LYMPHOMA
     Route: 048
     Dates: start: 20120111, end: 20120803
  3. LEVOTHYROXINE [Concomitant]
  4. ALBUTEROL [Concomitant]
  5. AZULFIDINE [Concomitant]
  6. BUDESONIDE [Concomitant]
  7. NASONEX [Concomitant]
  8. ZOFRAN [Concomitant]
  9. PREDNISONE [Concomitant]
  10. RANITIDINE [Concomitant]
  11. SIMETHICONE [Concomitant]
  12. BACTRIM [Concomitant]
  13. ALDACTONE [Concomitant]

REACTIONS (1)
  - Myocardial infarction [Recovered/Resolved]
